FAERS Safety Report 9961250 (Version 1)
Quarter: 2014Q1

REPORT INFORMATION
  Report Type: Spontaneous
  Country: JP (occurrence: JP)
  Receive Date: 20140305
  Receipt Date: 20140305
  Transmission Date: 20141002
  Serious: Yes (Death, Other)
  Sender: FDA-Public Use
  Company Number: JP-PFIZER INC-2014062699

PATIENT
  Age: 71 Year
  Sex: Female

DRUGS (2)
  1. CISPLATIN [Suspect]
     Indication: GASTRIC CANCER
     Dosage: 80 MG/M2, OVER 2 HOURS ON DAY 1
     Route: 065
  2. IRINOTECAN HCL [Suspect]
     Indication: GASTRIC CANCER
     Dosage: 60 MG/M2 ON DAY 1 AND 15
     Route: 065

REACTIONS (7)
  - Oesophageal ulcer haemorrhage [Fatal]
  - Pneumonia aspiration [Fatal]
  - Disease recurrence [Fatal]
  - Gastric cancer [Fatal]
  - Febrile neutropenia [Recovered/Resolved]
  - Diarrhoea [Recovered/Resolved]
  - Nausea [Recovered/Resolved]
